FAERS Safety Report 18306058 (Version 1)
Quarter: 2020Q3

REPORT INFORMATION
  Report Type: Spontaneous
  Country: US (occurrence: US)
  Receive Date: 20200923
  Receipt Date: 20200923
  Transmission Date: 20201103
  Serious: Yes (Hospitalization)
  Sender: FDA-Public Use
  Company Number: None

PATIENT
  Age: 75 Year
  Sex: Male

DRUGS (1)
  1. METHADONE (METHADONE HCL 55MG/20ML SOLN, ORAL) [Suspect]
     Active Substance: METHADONE HYDROCHLORIDE
     Indication: DRUG USE DISORDER
     Dates: start: 20161020, end: 20200626

REACTIONS (4)
  - Confusional state [None]
  - SARS-CoV-2 test positive [None]
  - Mental disorder [None]
  - Vascular dementia [None]

NARRATIVE: CASE EVENT DATE: 20200626
